FAERS Safety Report 8987472 (Version 2)
Quarter: 2013Q1

REPORT INFORMATION
  Report Type: Spontaneous
  Country: SE (occurrence: SE)
  Receive Date: 20121227
  Receipt Date: 20130124
  Transmission Date: 20140127
  Serious: Yes (Other)
  Sender: FDA-Public Use
  Company Number: SE-JNJFOC-20121207817

PATIENT
  Age: 38 Year
  Sex: Male

DRUGS (2)
  1. CONCERTA [Suspect]
     Indication: ATTENTION DEFICIT/HYPERACTIVITY DISORDER
     Dosage: 54 MG + 36 MG = 90 MG OR 36 MG +36 MG =72 MG DAILY
     Route: 048
  2. CONCERTA [Suspect]
     Indication: ATTENTION DEFICIT/HYPERACTIVITY DISORDER
     Dosage: LOWER DOSE
     Route: 048

REACTIONS (2)
  - Cardiac valve disease [Recovered/Resolved]
  - Cough [Recovered/Resolved]
